FAERS Safety Report 12147662 (Version 1)
Quarter: 2016Q1

REPORT INFORMATION
  Report Type: Spontaneous
  Country: US (occurrence: US)
  Receive Date: 20160304
  Receipt Date: 20160304
  Transmission Date: 20160526
  Serious: No
  Sender: FDA-Public Use
  Company Number: US-BAYER-2016-042633

PATIENT
  Age: 65 Year
  Sex: Female
  Weight: 65.76 kg

DRUGS (1)
  1. CLARITIN [Suspect]
     Active Substance: LORATADINE
     Indication: PRODUCTIVE COUGH
     Dosage: 1 DF, ONCE
     Route: 048
     Dates: start: 20160301, end: 20160301

REACTIONS (1)
  - Off label use [None]
